FAERS Safety Report 9436511 (Version 1)
Quarter: 2013Q3

REPORT INFORMATION
  Report Type: Spontaneous
  Country: DE (occurrence: DE)
  Receive Date: 20130802
  Receipt Date: 20130802
  Transmission Date: 20140515
  Serious: No
  Sender: FDA-Public Use
  Company Number: DE-OPTIMER-20130008

PATIENT
  Age: 93 Year
  Sex: Female

DRUGS (2)
  1. DIFICLIR [Suspect]
     Indication: DIARRHOEA
     Dosage: UNK
     Route: 050
     Dates: start: 201212, end: 201212
  2. MUTAFLOR [Concomitant]
     Indication: PRODUCT USED FOR UNKNOWN INDICATION
     Dosage: UNK

REACTIONS (2)
  - Diarrhoea [Unknown]
  - Off label use [Recovered/Resolved]
